FAERS Safety Report 13556867 (Version 1)
Quarter: 2017Q2

REPORT INFORMATION
  Report Type: Spontaneous
  Country: US (occurrence: US)
  Receive Date: 20170517
  Receipt Date: 20170517
  Transmission Date: 20170830
  Serious: Yes (Disabling, Other)
  Sender: FDA-Public Use
  Company Number: None

PATIENT
  Age: 57 Year
  Sex: Female
  Weight: 103.5 kg

DRUGS (10)
  1. LORAZEPAM. [Concomitant]
     Active Substance: LORAZEPAM
  2. LEVOFLOXACIN 750MG [Suspect]
     Active Substance: LEVOFLOXACIN
     Indication: SINUSITIS
     Dosage: ?          QUANTITY:7 TABLET(S);?
     Route: 048
     Dates: start: 20170221, end: 20170227
  3. VITAMIN D [Concomitant]
     Active Substance: CHOLECALCIFEROL
  4. VITAMIN E [Concomitant]
     Active Substance: .ALPHA.-TOCOPHEROL
  5. CITALOPRAM [Concomitant]
     Active Substance: CITALOPRAM HYDROBROMIDE
  6. VITAMIN C [Concomitant]
     Active Substance: ASCORBIC ACID
  7. CALCIUM [Concomitant]
     Active Substance: CALCIUM
  8. VITAMIN B [Concomitant]
     Active Substance: VITAMIN B
  9. COQ10 [Concomitant]
     Active Substance: UBIDECARENONE
  10. ESSENTIAL OILS. [Concomitant]
     Active Substance: ESSENTIAL OILS

REACTIONS (8)
  - Arthralgia [None]
  - Peripheral swelling [None]
  - Pain in extremity [None]
  - Pain [None]
  - Abasia [None]
  - Arthropathy [None]
  - Inflammation [None]
  - Drug ineffective [None]

NARRATIVE: CASE EVENT DATE: 20170221
